FAERS Safety Report 16871994 (Version 2)
Quarter: 2020Q1

REPORT INFORMATION
  Report Type: Spontaneous
  Country: IT (occurrence: IT)
  Receive Date: 20191001
  Receipt Date: 20200109
  Transmission Date: 20200409
  Serious: Yes (Hospitalization, Other)
  Sender: FDA-Public Use
  Company Number: IT-AUROBINDO-AUR-APL-2019-063189

PATIENT
  Age: 23 Year
  Sex: Male

DRUGS (3)
  1. LEVETIRACETAM FILM-COATED TABLET [Suspect]
     Active Substance: LEVETIRACETAM
     Indication: EPILEPSY
     Dosage: 1 GRAM, ONCE A DAY
     Route: 048
  2. LAMOTRIGINE. [Suspect]
     Active Substance: LAMOTRIGINE
     Indication: EPILEPSY
     Dosage: 25 MILLIGRAM, ONCE A DAY
     Route: 048
  3. VIMPAT [Interacting]
     Active Substance: LACOSAMIDE
     Indication: EPILEPSY
     Dosage: 100 MILLIGRAM, ONCE A DAY
     Route: 048

REACTIONS (4)
  - Epilepsy [Recovered/Resolved with Sequelae]
  - Blood sodium decreased [Recovered/Resolved with Sequelae]
  - Drug interaction [Recovered/Resolved with Sequelae]
  - Drug ineffective [Recovered/Resolved with Sequelae]

NARRATIVE: CASE EVENT DATE: 20190801
